FAERS Safety Report 22603555 (Version 1)
Quarter: 2023Q2

REPORT INFORMATION
  Report Type: Spontaneous
  Country: US (occurrence: US)
  Receive Date: 20230615
  Receipt Date: 20230615
  Transmission Date: 20230721
  Serious: Yes (Hospitalization, Other)
  Sender: FDA-Public Use
  Company Number: US-USP-004817

PATIENT
  Age: 43 Year
  Sex: Female

DRUGS (5)
  1. NITROGLYCERIN [Suspect]
     Active Substance: NITROGLYCERIN
     Indication: Diplopia
     Dosage: PASTE
     Route: 065
  2. HYALURONIDASE [Suspect]
     Active Substance: HYALURONIDASE
     Indication: Diplopia
     Route: 065
  3. ASPIRIN [Suspect]
     Active Substance: ASPIRIN
     Indication: Diplopia
     Route: 065
  4. AUGMENTIN [Suspect]
     Active Substance: AMOXICILLIN\CLAVULANATE POTASSIUM
     Indication: Evidence based treatment
     Route: 065
  5. HYALURONIDASE [Suspect]
     Active Substance: HYALURONIDASE
     Indication: Diplopia
     Route: 065

REACTIONS (4)
  - Disease progression [Unknown]
  - Skin necrosis [Unknown]
  - Rash pustular [Unknown]
  - Product use in unapproved indication [Unknown]
